FAERS Safety Report 20884320 (Version 1)
Quarter: 2022Q2

REPORT INFORMATION
  Report Type: Spontaneous
  Country: CN (occurrence: CN)
  Receive Date: 20220527
  Receipt Date: 20220527
  Transmission Date: 20220721
  Serious: Yes (Disabling)
  Sender: FDA-Public Use
  Company Number: CN-PFIZER INC-202200743990

PATIENT
  Age: 14 Year
  Sex: Female
  Weight: 50 kg

DRUGS (2)
  1. SOLU-MEDROL [Suspect]
     Active Substance: METHYLPREDNISOLONE SODIUM SUCCINATE
     Indication: IIIrd nerve disorder
     Dosage: 60 MG, 1X/DAY
     Route: 041
     Dates: start: 20220428, end: 20220503
  2. DEXAMETHASONE SODIUM PHOSPHATE [Suspect]
     Active Substance: DEXAMETHASONE SODIUM PHOSPHATE
     Indication: IIIrd nerve disorder
     Dosage: 10 MG, 1X/DAY
     Route: 041
     Dates: start: 20220504, end: 20220509

REACTIONS (1)
  - Hepatic function abnormal [Not Recovered/Not Resolved]

NARRATIVE: CASE EVENT DATE: 20220509
